FAERS Safety Report 4560532-2 (Version None)
Quarter: 2005Q1

REPORT INFORMATION
  Report Type: 
  Country: None (occurrence: None)
  Receive Date: 20050125
  Receipt Date: 20050118
  Transmission Date: 20050727
  Serious: Yes (Other)
  Sender: FDA-Public Use
  Company Number: US-GLAXOSMITHKLINE-A0541108A

PATIENT
  Age: 83 Year
  Sex: Male

DRUGS (4)
  1. COREG [Suspect]
     Route: 048
  2. DIGOXIN [Concomitant]
  3. TORSEMIDE [Concomitant]
  4. POTASSIUM [Concomitant]

REACTIONS (12)
  - ARRHYTHMIA [None]
  - CONFUSIONAL STATE [None]
  - DEPRESSION [None]
  - DIFFICULTY IN WALKING [None]
  - DIZZINESS [None]
  - DYSPNOEA [None]
  - FATIGUE [None]
  - FLUID RETENTION [None]
  - FREQUENT BOWEL MOVEMENTS [None]
  - ILL-DEFINED DISORDER [None]
  - MUSCLE ATROPHY [None]
  - THINKING ABNORMAL [None]
